FAERS Safety Report 12597574 (Version 1)
Quarter: 2016Q3

REPORT INFORMATION
  Report Type: Spontaneous
  Country: US (occurrence: None)
  Receive Date: 20160726
  Receipt Date: 20160726
  Transmission Date: 20161109
  Serious: Yes (Hospitalization)
  Sender: FDA-Public Use
  Company Number: None

PATIENT
  Age: 67 Year
  Sex: Male
  Weight: 82.3 kg

DRUGS (2)
  1. GABAPENTIN. [Suspect]
     Active Substance: GABAPENTIN
     Indication: DERMATITIS EXFOLIATIVE
     Route: 048
     Dates: start: 20160601, end: 20160624
  2. SULFAMETHOXAZOLE/TRIMETHOPRIM [Suspect]
     Active Substance: SULFAMETHOXAZOLE\TRIMETHOPRIM
     Indication: DERMATITIS EXFOLIATIVE
     Dosage: 800/160 MG PO
     Route: 048
     Dates: start: 20160615, end: 20160623

REACTIONS (4)
  - Respiratory depression [None]
  - Dermatitis exfoliative [None]
  - Rash [None]
  - Skin exfoliation [None]

NARRATIVE: CASE EVENT DATE: 20160623
